FAERS Safety Report 9441170 (Version 1)
Quarter: 2013Q3

REPORT INFORMATION
  Report Type: Spontaneous
  Country: JP (occurrence: JP)
  Receive Date: 20130805
  Receipt Date: 20130805
  Transmission Date: 20140515
  Serious: Yes (Hospitalization)
  Sender: FDA-Public Use
  Company Number: PHHY2013JP073148

PATIENT
  Age: 43 Year
  Sex: Male
  Weight: 64.4 kg

DRUGS (13)
  1. ISONIAZID [Suspect]
     Indication: PULMONARY TUBERCULOSIS
     Dosage: 300 MG, UNK
  2. ISONIAZID [Suspect]
     Dosage: 25 MG, UNK
  3. ALLOPURINOL [Suspect]
     Indication: HYPERURICAEMIA
     Dosage: 100 MG, UNK
  4. RIFAMPICIN [Concomitant]
     Indication: PULMONARY TUBERCULOSIS
     Dosage: 600 MG, UNK
  5. RIFAMPICIN [Concomitant]
     Dosage: 600 MG, UNK
  6. RIFAMPICIN [Concomitant]
     Dosage: 600 MG, UNK
  7. PYRAZINAMIDE [Concomitant]
     Indication: PULMONARY TUBERCULOSIS
     Dosage: 1500 MG, UNK
  8. ETHAMBUTOL [Concomitant]
     Indication: PULMONARY TUBERCULOSIS
     Dosage: 875 MG, UNK
  9. ETHAMBUTOL [Concomitant]
     Dosage: 875 MG, UNK
  10. ETHAMBUTOL [Concomitant]
     Dosage: 875 MG, UNK
  11. GLYCYRRHIZIC ACID, AMMONIUM SALT [Concomitant]
     Dosage: 40 MG, UNK
  12. URSODEOXYCHOLIC ACID [Concomitant]
     Dosage: 300 MG, UNK
  13. LEVOFLOXACIN [Concomitant]
     Dosage: 500 MG, UNK

REACTIONS (20)
  - Drug reaction with eosinophilia and systemic symptoms [Recovered/Resolved]
  - Pyrexia [Recovered/Resolved]
  - Erythema [Recovered/Resolved]
  - Hepatic function abnormal [Recovered/Resolved]
  - Headache [Recovered/Resolved]
  - Nausea [Recovered/Resolved]
  - Lymphadenopathy [Recovered/Resolved]
  - Vomiting [Recovered/Resolved]
  - Jaundice [Recovered/Resolved]
  - Oedema mouth [Recovered/Resolved]
  - Tongue oedema [Recovered/Resolved]
  - Malaise [Recovered/Resolved]
  - Perivascular dermatitis [Recovered/Resolved]
  - Stomatitis [Recovered/Resolved]
  - Glossitis [Recovered/Resolved]
  - Oral mucosal erythema [Recovered/Resolved]
  - Hepatomegaly [Recovered/Resolved]
  - Splenomegaly [Recovered/Resolved]
  - Papule [Recovered/Resolved]
  - Rash [Recovered/Resolved]
